FAERS Safety Report 5736940-0 (Version None)
Quarter: 2008Q2

REPORT INFORMATION
  Report Type: 
  Country: None (occurrence: None)
  Receive Date: 20080509
  Receipt Date: 20080429
  Transmission Date: 20081010
  Serious: Yes (Hospitalization)
  Sender: FDA-Public Use
  Company Number: GXKR2008CH04079

PATIENT
  Age: 71 Year
  Sex: Female

DRUGS (5)
  1. AMOXICILLIN + CLAVULANATE POTASSIUM [Suspect]
     Indication: EYE INFLAMMATION
     Dosage: ORAL
     Route: 048
     Dates: start: 20080320, end: 20080322
  2. MARCUMAR [Concomitant]
  3. METOPROLOL TARTRATE [Concomitant]
  4. CANDESARTAN CILEXETIL [Concomitant]
  5. LESCOL [Concomitant]

REACTIONS (9)
  - DRUG HYPERSENSITIVITY [None]
  - DRUG PRESCRIBING ERROR [None]
  - GENITAL SWELLING [None]
  - HYPOTENSION [None]
  - MALAISE [None]
  - PRURITUS GENITAL [None]
  - PYREXIA [None]
  - RASH MACULO-PAPULAR [None]
  - SYNCOPE VASOVAGAL [None]
